FAERS Safety Report 10053088 (Version 1)
Quarter: 2014Q2

REPORT INFORMATION
  Report Type: Spontaneous
  Country: US (occurrence: US)
  Receive Date: 20140402
  Receipt Date: 20140402
  Transmission Date: 20141212
  Serious: Yes (Other)
  Sender: FDA-Public Use
  Company Number: US-IPSEN BIOPHARMACEUTICALS, INC.-2014-1517

PATIENT
  Age: 52 Year
  Sex: Female
  Weight: 63 kg

DRUGS (4)
  1. DYSPORT [Suspect]
     Indication: TORTICOLLIS
     Dosage: 200 UNITS
     Route: 065
     Dates: start: 20140210, end: 20140210
  2. DYSPORT [Suspect]
     Dosage: 200 UNITS
     Route: 065
     Dates: start: 20131022, end: 20131022
  3. LORAZEPAM [Concomitant]
     Indication: PRODUCT USED FOR UNKNOWN INDICATION
     Route: 023
  4. IBUPROFEN [Concomitant]
     Indication: PRODUCT USED FOR UNKNOWN INDICATION
     Route: 065

REACTIONS (10)
  - Choking [Recovering/Resolving]
  - Dysphagia [Recovering/Resolving]
  - Head discomfort [Unknown]
  - Dehydration [Recovering/Resolving]
  - Dry throat [Not Recovered/Not Resolved]
  - Nasal dryness [Recovering/Resolving]
  - Productive cough [Recovering/Resolving]
  - Eye discharge [Recovering/Resolving]
  - Weight decreased [Recovering/Resolving]
  - Fatigue [Recovering/Resolving]
